FAERS Safety Report 16896317 (Version 2)
Quarter: 2019Q4

REPORT INFORMATION
  Report Type: Report from Study
  Country: US (occurrence: US)
  Receive Date: 20191008
  Receipt Date: 20191010
  Transmission Date: 20200122
  Serious: Yes (Other)
  Sender: FDA-Public Use
  Company Number: US-GLAXOSMITHKLINE-2019-TSO01596-US

PATIENT
  Age: 70 Year
  Sex: Female
  Weight: 88 kg

DRUGS (1)
  1. NIRAPARIB [Suspect]
     Active Substance: NIRAPARIB
     Indication: OVARIAN CANCER
     Dosage: 200 MG QPM WITH FOOD
     Route: 048
     Dates: start: 20190402, end: 20190902

REACTIONS (11)
  - Stress [Unknown]
  - Emotional disorder [Not Recovered/Not Resolved]
  - Abdominal discomfort [Unknown]
  - Heart rate increased [Recovered/Resolved]
  - Blood pressure increased [Unknown]
  - Decreased appetite [Not Recovered/Not Resolved]
  - Neoplasm progression [Unknown]
  - Carbohydrate antigen 125 increased [Unknown]
  - Fatigue [Unknown]
  - Drug ineffective [Unknown]
  - Asthenia [Unknown]

NARRATIVE: CASE EVENT DATE: 201904
